FAERS Safety Report 25346300 (Version 1)
Quarter: 2025Q2

REPORT INFORMATION
  Report Type: Report from Study
  Country: NL (occurrence: NL)
  Receive Date: 20250522
  Receipt Date: 20250522
  Transmission Date: 20250716
  Serious: Yes (Hospitalization, Other)
  Sender: AUROBINDO
  Company Number: NL-BEH-2023155880

PATIENT
  Age: 75 Year
  Sex: Male
  Weight: 90 kg

DRUGS (65)
  1. PHENYTOIN [Suspect]
     Active Substance: PHENYTOIN
     Indication: Epilepsy
     Route: 065
     Dates: end: 20221006
  2. PRIVIGEN [Suspect]
     Active Substance: HUMAN IMMUNOGLOBULIN G
     Indication: Epilepsy
     Route: 042
     Dates: start: 20221006, end: 20221010
  3. PRIVIGEN [Suspect]
     Active Substance: HUMAN IMMUNOGLOBULIN G
     Route: 042
     Dates: start: 202210, end: 202210
  4. PRIVIGEN [Suspect]
     Active Substance: HUMAN IMMUNOGLOBULIN G
     Route: 042
     Dates: start: 202210, end: 202210
  5. PRIVIGEN [Suspect]
     Active Substance: HUMAN IMMUNOGLOBULIN G
     Route: 042
     Dates: start: 202210, end: 202210
  6. PRIVIGEN [Suspect]
     Active Substance: HUMAN IMMUNOGLOBULIN G
     Dosage: 35 GRAM, ONCE A DAY
     Route: 042
     Dates: start: 20221027, end: 20221031
  7. PRIVIGEN [Suspect]
     Active Substance: HUMAN IMMUNOGLOBULIN G
     Route: 042
     Dates: start: 20221006, end: 20221031
  8. NADROPARIN [Concomitant]
     Active Substance: NADROPARIN
     Indication: Pulmonary embolism
     Dosage: 19000 INTERNATIONAL UNIT, ONCE A DAY
     Route: 065
     Dates: start: 202210
  9. POLYETHYLENE GLYCOLS [Concomitant]
     Active Substance: POLYETHYLENE GLYCOLS
     Indication: Ileus paralytic
     Route: 065
     Dates: end: 202301
  10. CEFUROXIME [Concomitant]
     Active Substance: CEFUROXIME
     Indication: Ileus paralytic
     Route: 065
  11. CEFUROXIME [Concomitant]
     Active Substance: CEFUROXIME
     Indication: Pyrexia
     Route: 065
  12. INSULIN GLULISINE [Concomitant]
     Active Substance: INSULIN GLULISINE
     Indication: Type 2 diabetes mellitus
     Route: 065
  13. LANTUS [Concomitant]
     Active Substance: INSULIN GLARGINE
     Indication: Type 2 diabetes mellitus
     Route: 065
  14. NOVORAPID [Concomitant]
     Active Substance: INSULIN ASPART
     Indication: Type 2 diabetes mellitus
     Route: 065
  15. LIRAGLUTIDE [Concomitant]
     Active Substance: LIRAGLUTIDE
     Indication: Type 2 diabetes mellitus
     Route: 065
  16. METFORMIN [Concomitant]
     Active Substance: METFORMIN HYDROCHLORIDE
     Indication: Type 2 diabetes mellitus
     Route: 065
  17. POTASSIUM [Concomitant]
     Active Substance: POTASSIUM
     Indication: Hypokalaemia
     Route: 065
  18. POTASSIUM [Concomitant]
     Active Substance: POTASSIUM
     Route: 065
     Dates: start: 202302
  19. POTASSIUM [Concomitant]
     Active Substance: POTASSIUM
     Dosage: 1 MMOL/L 30ML, BID, ONCE A DAY
     Route: 065
     Dates: start: 202302
  20. LACOSAMIDE [Concomitant]
     Active Substance: LACOSAMIDE
     Indication: Gamma-glutamyltransferase increased
     Route: 065
     Dates: start: 20221006, end: 20221006
  21. LACOSAMIDE [Concomitant]
     Active Substance: LACOSAMIDE
     Indication: Generalised tonic-clonic seizure
     Route: 065
     Dates: start: 20221007
  22. LACOSAMIDE [Concomitant]
     Active Substance: LACOSAMIDE
     Indication: Status epilepticus
     Route: 065
     Dates: start: 202210, end: 202210
  23. LACOSAMIDE [Concomitant]
     Active Substance: LACOSAMIDE
     Route: 065
     Dates: start: 202210
  24. HALDOL [Concomitant]
     Active Substance: HALOPERIDOL
     Indication: Delirium
     Dosage: 1 MILLIGRAM, ONCE A DAY
     Route: 065
     Dates: start: 20221007
  25. DEXTROSE [Concomitant]
     Active Substance: DEXTROSE MONOHYDRATE
     Indication: Hypernatraemia
     Route: 042
     Dates: start: 20221010
  26. OXYGEN [Concomitant]
     Active Substance: OXYGEN
     Indication: Dyspnoea
     Route: 065
  27. INSULIN NOS [Concomitant]
     Active Substance: INSULIN NOS
     Indication: Hyperglycaemia
     Dosage: 2 INTERNATIONAL UNIT, EVERY HOUR
     Route: 042
     Dates: start: 202210
  28. METHYLPREDNISOLONE [Concomitant]
     Active Substance: METHYLPREDNISOLONE
     Indication: Type 2 diabetes mellitus
     Route: 042
     Dates: start: 20221017, end: 20221021
  29. PREDNISONE [Concomitant]
     Active Substance: PREDNISONE
     Indication: Type 2 diabetes mellitus
     Dosage: 60 MILLIGRAM, ONCE A DAY
     Route: 065
  30. PREDNISONE [Concomitant]
     Active Substance: PREDNISONE
     Dosage: 15 MILLIGRAM, ONCE A DAY
     Route: 065
  31. PREDNISONE [Concomitant]
     Active Substance: PREDNISONE
     Dosage: 40 MILLIGRAM, ONCE A DAY
     Route: 065
     Dates: end: 202211
  32. RITUXIMAB [Concomitant]
     Active Substance: RITUXIMAB
     Indication: Type 2 diabetes mellitus
     Route: 042
     Dates: end: 20221105
  33. RITUXIMAB [Concomitant]
     Active Substance: RITUXIMAB
     Route: 042
     Dates: end: 20221118
  34. RITUXIMAB [Concomitant]
     Active Substance: RITUXIMAB
     Route: 065
     Dates: start: 20221104, end: 20221104
  35. RITUXIMAB [Concomitant]
     Active Substance: RITUXIMAB
     Route: 065
     Dates: start: 20221118, end: 20221118
  36. CEFTRIAXONE [Concomitant]
     Active Substance: CEFTRIAXONE
     Indication: Product used for unknown indication
     Dosage: 2 GRAM, ONCE A DAY
     Route: 042
     Dates: start: 20221011, end: 20221015
  37. CEFTRIAXONE [Concomitant]
     Active Substance: CEFTRIAXONE
     Dosage: 2 GRAM, ONCE A DAY
     Route: 042
     Dates: start: 20221026, end: 20221030
  38. CEFTRIAXONE [Concomitant]
     Active Substance: CEFTRIAXONE
     Dosage: 2 GRAM, ONCE A DAY
     Route: 042
     Dates: start: 20221101, end: 20221105
  39. CIPROFLOXACIN [Concomitant]
     Active Substance: CIPROFLOXACIN
     Indication: Product used for unknown indication
     Dosage: 1200 MILLIGRAM, ONCE A DAY
     Route: 042
     Dates: start: 20221026, end: 20221104
  40. LEVOCETIRIZINE [Concomitant]
     Active Substance: LEVOCETIRIZINE
     Indication: Drug ineffective for unapproved indication
     Dosage: 600 MILLIGRAM, ONCE A DAY
     Route: 065
  41. LEVOCETIRIZINE [Concomitant]
     Active Substance: LEVOCETIRIZINE
     Dosage: 2000 MILLIGRAM, ONCE A DAY
     Route: 065
  42. LEVOCETIRIZINE [Concomitant]
     Active Substance: LEVOCETIRIZINE
     Route: 065
     Dates: start: 20221109
  43. LEVOCETIRIZINE [Concomitant]
     Active Substance: LEVOCETIRIZINE
     Route: 065
     Dates: start: 20221111
  44. LEVOCETIRIZINE [Concomitant]
     Active Substance: LEVOCETIRIZINE
     Dosage: 2500 MILLIGRAM, ONCE A DAY
     Route: 065
     Dates: start: 20221111
  45. MIDAZOLAM [Concomitant]
     Active Substance: MIDAZOLAM
     Indication: Drug ineffective for unapproved indication
     Dosage: 0.15 MILLIGRAM/KILOGRAM, EVERY HOUR
     Route: 065
     Dates: start: 20221026, end: 20221102
  46. MIDAZOLAM [Concomitant]
     Active Substance: MIDAZOLAM
     Indication: Status epilepticus
  47. PROPOFOL [Concomitant]
     Active Substance: PROPOFOL
     Indication: Drug ineffective for unapproved indication
     Dosage: 2 MILLIGRAM/KILOGRAM, EVERY HOUR
     Route: 065
     Dates: start: 20221026, end: 202211
  48. PROPOFOL [Concomitant]
     Active Substance: PROPOFOL
     Indication: Status epilepticus
     Dosage: 1 MILLIGRAM/KILOGRAM, EVERY HOUR
     Route: 065
     Dates: start: 202211, end: 202211
  49. PROPOFOL [Concomitant]
     Active Substance: PROPOFOL
     Dosage: 2 MILLIGRAM/KILOGRAM, EVERY HOUR
     Route: 065
     Dates: start: 20221103, end: 20221106
  50. CARBIMAZOLE [Concomitant]
     Active Substance: CARBIMAZOLE
     Indication: Drug ineffective for unapproved indication
     Dosage: 400 MILLIGRAM, ONCE A DAY
     Route: 065
     Dates: start: 20221104, end: 202211
  51. CARBIMAZOLE [Concomitant]
     Active Substance: CARBIMAZOLE
     Dosage: 600 MILLIGRAM, ONCE A DAY
     Route: 065
     Dates: start: 20221109
  52. VALPROIC ACID [Concomitant]
     Active Substance: VALPROIC ACID
     Indication: Drug ineffective for unapproved indication
     Route: 065
     Dates: start: 20221109
  53. NITRAZEPAM [Concomitant]
     Active Substance: NITRAZEPAM
     Indication: Drug ineffective for unapproved indication
     Dosage: 10 MILLIGRAM, ONCE A DAY
     Route: 065
     Dates: start: 20221112, end: 20221112
  54. NITRAZEPAM [Concomitant]
     Active Substance: NITRAZEPAM
     Indication: Generalised tonic-clonic seizure
     Dosage: 15 MILLIGRAM, ONCE A DAY
     Route: 065
     Dates: start: 20221113, end: 20221114
  55. NITRAZEPAM [Concomitant]
     Active Substance: NITRAZEPAM
     Dosage: 15 MILLIGRAM, ONCE A DAY
     Route: 065
     Dates: start: 20221117, end: 202211
  56. REMIFENTANIL [Concomitant]
     Active Substance: REMIFENTANIL
     Indication: Drug ineffective for unapproved indication
     Route: 065
  57. LEVETIRACETAM [Concomitant]
     Active Substance: LEVETIRACETAM
     Indication: Status epilepticus
     Route: 065
  58. LEVETIRACETAM [Concomitant]
     Active Substance: LEVETIRACETAM
     Route: 065
  59. LEVETIRACETAM [Concomitant]
     Active Substance: LEVETIRACETAM
     Route: 065
     Dates: start: 202210
  60. CARBAMAZEPINE [Concomitant]
     Active Substance: CARBAMAZEPINE
     Indication: Product used for unknown indication
     Route: 065
  61. CARBAMAZEPINE [Concomitant]
     Active Substance: CARBAMAZEPINE
     Route: 065
  62. PIPERACILLIN AND TAZOBACTAM [Concomitant]
     Active Substance: PIPERACILLIN SODIUM\TAZOBACTAM SODIUM
     Indication: Respiratory failure
     Route: 065
  63. PIPERACILLIN AND TAZOBACTAM [Concomitant]
     Active Substance: PIPERACILLIN SODIUM\TAZOBACTAM SODIUM
     Route: 065
     Dates: start: 20221104, end: 20221104
  64. MOVICOLON [Concomitant]
     Active Substance: POLYETHYLENE GLYCOL 3350\POTASSIUM CHLORIDE\SODIUM BICARBONATE\SODIUM CHLORIDE
     Indication: Ileus
     Route: 065
  65. MAGNESIUM [Concomitant]
     Active Substance: MAGNESIUM
     Indication: Hypomagnesaemia
     Route: 065

REACTIONS (24)
  - Clostridium difficile colitis [Recovered/Resolved]
  - Abdominal distension [Recovered/Resolved]
  - Vomiting [Recovered/Resolved]
  - Diarrhoea [Recovered/Resolved]
  - Urinary tract infection [Recovered/Resolved]
  - Escherichia infection [Recovered/Resolved]
  - Enterobacter infection [Recovered/Resolved]
  - Ileus [Recovered/Resolved]
  - Urinary retention [Not Recovered/Not Resolved]
  - Delirium [Recovered/Resolved]
  - Agitation [Not Recovered/Not Resolved]
  - Hypoglycaemia [Not Recovered/Not Resolved]
  - Hyperglycaemia [Recovered/Resolved]
  - Penile ulceration [Not Recovered/Not Resolved]
  - Oral candidiasis [Not Recovered/Not Resolved]
  - Aspartate aminotransferase increased [Recovered/Resolved]
  - Hypernatraemia [Recovered/Resolved]
  - Gamma-glutamyltransferase increased [Recovered/Resolved]
  - Leukocytosis [Recovered/Resolved]
  - Alanine aminotransferase increased [Recovered/Resolved]
  - Anaemia [Unknown]
  - Blood alkaline phosphatase increased [Recovered/Resolved]
  - Blood immunoglobulin G increased [Recovered/Resolved]
  - Off label use [Unknown]

NARRATIVE: CASE EVENT DATE: 20221003
